FAERS Safety Report 4305696-0 (Version None)
Quarter: 2004Q1

REPORT INFORMATION
  Report Type: 
  Country: None (occurrence: None)
  Receive Date: 20040225
  Receipt Date: 20040213
  Transmission Date: 20041129
  Serious: Yes (Hospitalization)
  Sender: FDA-Public Use
  Company Number: 03P-163-0239619-00

PATIENT
  Age: 34 Year
  Sex: Male

DRUGS (4)
  1. NORVIR [Suspect]
     Indication: HIV INFECTION
     Dosage: 200 MG, 2 IN 1 D, PER ORAL
     Route: 048
     Dates: start: 20030918
  2. TIPRANAVIR [Concomitant]
  3. LAMIVUDINE [Concomitant]
  4. FUZEON [Concomitant]

REACTIONS (4)
  - CHOLECYSTITIS [None]
  - IMMUNE RECONSTITUTION SYNDROME [None]
  - NIGHT SWEATS [None]
  - PYREXIA [None]
